FAERS Safety Report 5971063-7 (Version None)
Quarter: 2008Q4

REPORT INFORMATION
  Report Type: 
  Country: None (occurrence: None)
  Receive Date: 20081128
  Receipt Date: 20081120
  Transmission Date: 20090506
  Serious: Yes (Other)
  Sender: FDA-Public Use
  Company Number: FI-JNJFOC-20080504988

PATIENT
  Sex: Female

DRUGS (1)
  1. RISPERDAL [Suspect]
     Indication: DRUG USE FOR UNKNOWN INDICATION
     Route: 048

REACTIONS (5)
  - CONDITION AGGRAVATED [None]
  - MUSCLE RIGIDITY [None]
  - PALPITATIONS [None]
  - PSYCHOTIC DISORDER [None]
  - TACHYCARDIA [None]
